FAERS Safety Report 9226181 (Version 2)
Quarter: 2013Q2

REPORT INFORMATION
  Report Type: Report from Study
  Country: US (occurrence: US)
  Receive Date: 20130411
  Receipt Date: 20130502
  Transmission Date: 20140414
  Serious: Yes (Hospitalization)
  Sender: FDA-Public Use
  Company Number: US-ABBOTT-13P-163-1071589-00

PATIENT
  Age: 68 Year
  Sex: Male
  Weight: 99.88 kg

DRUGS (6)
  1. HUMIRA [Suspect]
     Indication: PSORIASIS
     Dates: start: 20130304, end: 20130304
  2. HUMIRA [Suspect]
     Dates: start: 20130311, end: 20130325
  3. PREDNISONE [Concomitant]
     Indication: PRODUCT USED FOR UNKNOWN INDICATION
     Route: 048
     Dates: start: 20130331
  4. HYZAAR [Concomitant]
     Indication: PREHYPERTENSION
     Dosage: 50/12.5 MG
     Route: 048
     Dates: start: 20130331
  5. MOBIC [Concomitant]
     Indication: PRODUCT USED FOR UNKNOWN INDICATION
     Route: 048
  6. FLOMAX [Concomitant]
     Indication: PRODUCT USED FOR UNKNOWN INDICATION
     Dosage: AT BEDTIME
     Route: 048

REACTIONS (5)
  - Cellulitis [Recovering/Resolving]
  - Psoriasis [Not Recovered/Not Resolved]
  - Oedema peripheral [Recovering/Resolving]
  - Paraesthesia [Recovering/Resolving]
  - Rash maculo-papular [Unknown]
